FAERS Safety Report 6204404-6 (Version None)
Quarter: 2009Q2

REPORT INFORMATION
  Report Type: 
  Country: None (occurrence: None)
  Receive Date: 20090521
  Receipt Date: 20090516
  Transmission Date: 20091009
  Serious: Yes (Hospitalization)
  Sender: FDA-Public Use
  Company Number: CHPA2009US11691

PATIENT
  Age: 62 Year
  Sex: Female
  Weight: 61.2 kg

DRUGS (3)
  1. NICOTINE [Suspect]
     Indication: SMOKING CESSATION THERAPY
     Dosage: 21 MG, QD, TRANSDERMAL, 21 MG, QD, TRANSDERMAL
     Route: 062
     Dates: start: 20090301, end: 20090401
  2. NICOTINE [Suspect]
     Indication: SMOKING CESSATION THERAPY
     Dosage: 21 MG, QD, TRANSDERMAL, 21 MG, QD, TRANSDERMAL
     Route: 062
     Dates: start: 20090515
  3. INSULIN (INSULIN) [Concomitant]

REACTIONS (7)
  - ABNORMAL DREAMS [None]
  - ANXIETY [None]
  - CONFUSIONAL STATE [None]
  - DIZZINESS [None]
  - DYSPNOEA [None]
  - HEADACHE [None]
  - TREATMENT NONCOMPLIANCE [None]
